FAERS Safety Report 6589903-X (Version None)
Quarter: 2010Q1

REPORT INFORMATION
  Report Type: 
  Country: None (occurrence: None)
  Receive Date: 20100219
  Receipt Date: 20100210
  Transmission Date: 20100710
  Serious: Yes (Hospitalization, Other)
  Sender: FDA-Public Use
  Company Number: KR-JNJFOC-20100204730

PATIENT
  Age: 61 Year
  Sex: Male

DRUGS (2)
  1. RISPERIDONE [Suspect]
     Indication: DEMENTIA
     Route: 065
  2. DONEPEZIL HCL [Concomitant]
     Indication: DEMENTIA
     Route: 065

REACTIONS (3)
  - HICCUPS [None]
  - IRON DEFICIENCY ANAEMIA [None]
  - REFLUX OESOPHAGITIS [None]
